FAERS Safety Report 10403474 (Version 1)
Quarter: 2014Q3

REPORT INFORMATION
  Report Type: Spontaneous
  Country: US (occurrence: US)
  Receive Date: 20140822
  Receipt Date: 20140822
  Transmission Date: 20150326
  Serious: No
  Sender: FDA-Public Use
  Company Number: US-ASTRAZENECA-2013SE86946

PATIENT
  Age: 69 Year
  Sex: Male
  Weight: 117.9 kg

DRUGS (3)
  1. SYMBICORT [Suspect]
     Active Substance: BUDESONIDE\FORMOTEROL FUMARATE DIHYDRATE
     Indication: CHRONIC OBSTRUCTIVE PULMONARY DISEASE
     Dosage: 160/4.5 MCG, 2 PUFFS BID
     Route: 055
  2. STEROIDS [Suspect]
     Active Substance: UNSPECIFIED INGREDIENT
     Route: 065
  3. ALBUTEROL. [Concomitant]
     Active Substance: ALBUTEROL

REACTIONS (7)
  - Oropharyngeal pain [Unknown]
  - Memory impairment [Unknown]
  - Dysphonia [Unknown]
  - Intentional product misuse [Unknown]
  - Irritability [Unknown]
  - Circumstance or information capable of leading to medication error [Unknown]
  - Abnormal weight gain [Recovering/Resolving]
